FAERS Safety Report 13953871 (Version 1)
Quarter: 2017Q3

REPORT INFORMATION
  Report Type: Spontaneous
  Country: US (occurrence: US)
  Receive Date: 20170911
  Receipt Date: 20170911
  Transmission Date: 20171128
  Serious: No
  Sender: FDA-Public Use
  Company Number: US-TEVA-727376ACC

PATIENT
  Sex: Male

DRUGS (3)
  1. CRESTOR [Concomitant]
     Active Substance: ROSUVASTATIN CALCIUM
     Dosage: 5 MILLIGRAM DAILY;
  2. VALTREX [Concomitant]
     Active Substance: VALACYCLOVIR HYDROCHLORIDE
     Dosage: 1 GRAM DAILY;
  3. VENLAFAXINE HYDROCHLORIDE EXTENDED-RELEASE CAPSULES [Suspect]
     Active Substance: VENLAFAXINE HYDROCHLORIDE
     Dosage: 150 MILLIGRAM DAILY;
     Dates: start: 20161001, end: 20161230

REACTIONS (4)
  - Anger [Recovered/Resolved]
  - Panic attack [Recovered/Resolved]
  - Product substitution issue [Unknown]
  - Generalised anxiety disorder [Recovered/Resolved]
